FAERS Safety Report 23484311 (Version 1)
Quarter: 2024Q1

REPORT INFORMATION
  Report Type: Report from Study
  Country: CA (occurrence: CA)
  Receive Date: 20240206
  Receipt Date: 20240206
  Transmission Date: 20240410
  Serious: Yes (Other)
  Sender: FDA-Public Use
  Company Number: CA-Merck Healthcare KGaA-2024005900

PATIENT
  Age: 29 Year
  Sex: Male

DRUGS (2)
  1. MAVENCLAD [Suspect]
     Active Substance: CLADRIBINE
     Indication: Multiple sclerosis
     Dosage: YEAR ONE FIRST WEEK.?EXPIRY DATE WAS MAR-2027 FOR 6 TABLET WITH BATCH NUMBER N2300805.
     Route: 048
     Dates: start: 20231211
  2. MAVENCLAD [Suspect]
     Active Substance: CLADRIBINE
     Dosage: YEAR ONE SECOND WEEK.?EXPIRY DATE WAS AUG-2026 FOR 1 TABLET WITH BATCH NUMBER 00034350.
     Route: 048

REACTIONS (2)
  - Melaena [Recovered/Resolved]
  - Abdominal pain upper [Recovered/Resolved]
